FAERS Safety Report 14916229 (Version 3)
Quarter: 2018Q2

REPORT INFORMATION
  Report Type: Spontaneous
  Country: US (occurrence: US)
  Receive Date: 20180518
  Receipt Date: 20180626
  Transmission Date: 20180711
  Serious: Yes (Other)
  Sender: FDA-Public Use
  Company Number: US-JNJFOC-20180438026

PATIENT
  Age: 37 Year
  Sex: Male

DRUGS (1)
  1. INVEGA TRINZA [Suspect]
     Active Substance: PALIPERIDONE PALMITATE
     Indication: SCHIZOAFFECTIVE DISORDER
     Route: 030
     Dates: start: 20180316

REACTIONS (8)
  - Agitation [Recovered/Resolved]
  - Disturbance in social behaviour [Unknown]
  - Schizoaffective disorder [Recovered/Resolved]
  - Malaise [Unknown]
  - Off label use [Unknown]
  - Irritability [Unknown]
  - Insomnia [Unknown]
  - Product use in unapproved indication [Unknown]

NARRATIVE: CASE EVENT DATE: 2018
